FAERS Safety Report 6921058-1 (Version None)
Quarter: 2010Q3

REPORT INFORMATION
  Report Type: 
  Country: None (occurrence: None)
  Receive Date: 20100812
  Receipt Date: 20100806
  Transmission Date: 20110219
  Serious: Yes (Other)
  Sender: FDA-Public Use
  Company Number: CA-ROCHE-719519

PATIENT
  Sex: Female
  Weight: 59.9 kg

DRUGS (1)
  1. AVASTIN [Suspect]
     Route: 042
     Dates: start: 20100209, end: 20100729

REACTIONS (2)
  - HEPATIC FIBROSIS [None]
  - MALIGNANT NEOPLASM PROGRESSION [None]
